FAERS Safety Report 9305246 (Version 2)
Quarter: 2013Q4

REPORT INFORMATION
  Report Type: Report from Study
  Country: CA (occurrence: CA)
  Receive Date: 20130523
  Receipt Date: 20131206
  Transmission Date: 20140711
  Serious: Yes (Hospitalization, Other)
  Sender: FDA-Public Use
  Company Number: CA-JNJFOC-20130202996

PATIENT
  Age: 39 Year
  Sex: Female

DRUGS (3)
  1. REMICADE [Suspect]
     Indication: CROHN^S DISEASE
     Route: 042
     Dates: start: 20120301
  2. IMURAN [Concomitant]
     Route: 065
  3. CITALOPRAM [Concomitant]
     Route: 065

REACTIONS (4)
  - Carpal tunnel syndrome [Unknown]
  - Crohn^s disease [Recovered/Resolved]
  - Intestinal stenosis [Recovered/Resolved]
  - Intestinal obstruction [Recovered/Resolved]
